FAERS Safety Report 12432254 (Version 2)
Quarter: 2016Q3

REPORT INFORMATION
  Report Type: Spontaneous
  Country: US (occurrence: US)
  Receive Date: 20160603
  Receipt Date: 20160727
  Transmission Date: 20161109
  Serious: Yes (Other)
  Sender: FDA-Public Use
  Company Number: US-CELGENEUS-USA-2016056475

PATIENT
  Sex: Male
  Weight: 100.79 kg

DRUGS (1)
  1. REVLIMID [Suspect]
     Active Substance: LENALIDOMIDE
     Indication: PLASMA CELL MYELOMA
     Route: 048
     Dates: start: 201503

REACTIONS (7)
  - Blood triglycerides increased [Unknown]
  - Fatigue [Unknown]
  - Balance disorder [Unknown]
  - Neuropathy peripheral [Unknown]
  - Thrombosis [Unknown]
  - Memory impairment [Unknown]
  - Dizziness [Unknown]
